FAERS Safety Report 9029378 (Version 1)
Quarter: 2013Q1

REPORT INFORMATION
  Report Type: Spontaneous
  Country: US (occurrence: US)
  Receive Date: 20130125
  Receipt Date: 20130125
  Transmission Date: 20140127
  Serious: No
  Sender: FDA-Public Use
  Company Number: US-PFIZER INC-2013031946

PATIENT
  Age: 69 Year
  Sex: Male
  Weight: 83.9 kg

DRUGS (1)
  1. LYRICA [Suspect]
     Indication: PAIN IN EXTREMITY
     Dosage: UNK, DAILY
     Dates: start: 201301, end: 20130122

REACTIONS (2)
  - Rash [Not Recovered/Not Resolved]
  - Pharyngeal disorder [Not Recovered/Not Resolved]
